FAERS Safety Report 4518996-6 (Version None)
Quarter: 2004Q4

REPORT INFORMATION
  Report Type: 
  Country: None (occurrence: None)
  Receive Date: 20041203
  Receipt Date: 20041203
  Transmission Date: 20050328
  Serious: Yes (Hospitalization)
  Sender: FDA-Public Use
  Company Number: None

PATIENT
  Sex: Female
  Weight: 77 kg

DRUGS (8)
  1. TAXOTERE [Suspect]
     Indication: NEOPLASM RECURRENCE
     Dosage: 54MG IVSS WEEKLY X3
     Dates: start: 20041110, end: 20041117
  2. TOPOTECAN 3.5MG/M2 - GLAXO SMITHKLINE [Suspect]
     Indication: NEOPLASM RECURRENCE
     Dosage: 6.3MG IVSS WEEKLY  X3
     Dates: start: 20041110, end: 20041117
  3. TOPOTECAN 3.5MG/M2 - GLAXO SMITHKLINE [Suspect]
     Indication: PERITONEAL CARCINOMA
     Dosage: 6.3MG IVSS WEEKLY  X3
     Dates: start: 20041110, end: 20041117
  4. ZETIA [Concomitant]
  5. VIT B12 [Concomitant]
  6. TEQUIN [Concomitant]
  7. ZOCOR [Concomitant]
  8. PERCOCET [Concomitant]

REACTIONS (5)
  - ASCITES [None]
  - ASTHENIA [None]
  - BACK PAIN [None]
  - BLOOD CALCIUM INCREASED [None]
  - LABORATORY TEST ABNORMAL [None]
